FAERS Safety Report 20739499 (Version 3)
Quarter: 2022Q3

REPORT INFORMATION
  Report Type: Report from Study
  Country: JP (occurrence: JP)
  Receive Date: 20220422
  Receipt Date: 20220714
  Transmission Date: 20221026
  Serious: Yes (Other)
  Sender: FDA-Public Use
  Company Number: JP-GLAXOSMITHKLINE-JP2022JPN065798

PATIENT

DRUGS (9)
  1. BELIMUMAB [Suspect]
     Active Substance: BELIMUMAB
     Indication: Systemic lupus erythematosus
     Dosage: 200 MG, WE
     Route: 058
     Dates: start: 20210218, end: 20210422
  2. PROGRAF [Suspect]
     Active Substance: TACROLIMUS
     Indication: Systemic lupus erythematosus
     Dosage: 3 MG, 1D
     Route: 048
     Dates: start: 20130416, end: 20210422
  3. PREDNISOLONE [Suspect]
     Active Substance: PREDNISOLONE
     Indication: Systemic lupus erythematosus
     Dosage: 17.5 MG, 1D
     Route: 048
     Dates: start: 20130307
  4. PREDNISOLONE [Suspect]
     Active Substance: PREDNISOLONE
     Dosage: 10 MG, 1D
     Route: 048
  5. SULFAMETHOXAZOLE\TRIMETHOPRIM [Concomitant]
     Active Substance: SULFAMETHOXAZOLE\TRIMETHOPRIM
     Indication: Infection prophylaxis
     Dosage: 1 DF, 1D
     Route: 048
     Dates: start: 20210304
  6. REVOLADE TABLETS (ELTROMBOPAG OLAMINE) [Concomitant]
     Indication: Immune thrombocytopenia
     Dosage: 12.5 MG, 1D
     Route: 048
     Dates: start: 20210211
  7. PROMAC (JAPAN) [Concomitant]
     Indication: Stomatitis
     Dosage: 150 MG, 1D
     Route: 048
     Dates: start: 20150901
  8. GASLON [Concomitant]
     Active Substance: IRSOGLADINE MALEATE
     Indication: Stomatitis
     Dosage: 4 MG, 1D
     Route: 048
     Dates: start: 20130829
  9. BONOTEO TABLETS [Concomitant]
     Indication: Osteoporosis
     Dosage: 50 MG / M
     Route: 048
     Dates: start: 20130606

REACTIONS (2)
  - Bronchopulmonary aspergillosis [Recovered/Resolved]
  - Immunosuppression [Recovered/Resolved]

NARRATIVE: CASE EVENT DATE: 20210422
